FAERS Safety Report 16939836 (Version 1)
Quarter: 2019Q4

REPORT INFORMATION
  Report Type: Spontaneous
  Country: ZA (occurrence: ZA)
  Receive Date: 20191021
  Receipt Date: 20191021
  Transmission Date: 20200122
  Serious: Yes (Death, Other)
  Sender: FDA-Public Use
  Company Number: ZA-GLAXOSMITHKLINE-ZA2019EME187253

PATIENT

DRUGS (7)
  1. LANOXIN [Suspect]
     Active Substance: DIGOXIN
     Indication: CARDIAC DISORDER
     Dosage: 0.25 MG, UNK
     Route: 048
     Dates: end: 20191005
  2. WARFARIN [Suspect]
     Active Substance: WARFARIN
     Indication: ANTICOAGULANT THERAPY
     Dosage: 5 MG, UNK
     Route: 048
     Dates: end: 20191005
  3. VERAHEXAL [Suspect]
     Active Substance: VERAPAMIL HYDROCHLORIDE
     Indication: HYPERTENSION
     Dosage: 240 MG, UNK
     Route: 048
  4. RAN-PERINDOPRIL [Suspect]
     Active Substance: PERINDOPRIL
     Indication: HYPERTENSION
     Dosage: 4 MG, UNK
     Route: 048
     Dates: end: 20191005
  5. SANDOZ THEOPHYLLINE [Suspect]
     Active Substance: THEOPHYLLINE
     Indication: ASTHMA
     Dosage: 300 MG, UNK
     Route: 048
     Dates: end: 20191005
  6. SEEBRI-BREEZHALER [Suspect]
     Active Substance: GLYCOPYRROLATE
     Indication: ASTHMA
     Dosage: 50 UG, UNK
     Route: 048
     Dates: end: 20191005
  7. RELVAR ELLIPTA [Suspect]
     Active Substance: FLUTICASONE FUROATE\VILANTEROL TRIFENATATE
     Indication: PRODUCT USED FOR UNKNOWN INDICATION
     Dosage: UNK
     Dates: end: 20191005

REACTIONS (1)
  - Death [Fatal]
